FAERS Safety Report 16341827 (Version 1)
Quarter: 2019Q2

REPORT INFORMATION
  Report Type: Report from Study
  Country: CR (occurrence: CR)
  Receive Date: 20190522
  Receipt Date: 20190522
  Transmission Date: 20190711
  Serious: Yes (Other)
  Sender: FDA-Public Use
  Company Number: PHHY2019CR116392

PATIENT
  Age: 66 Year
  Sex: Male

DRUGS (1)
  1. VYMADA [Suspect]
     Active Substance: SACUBITRIL\VALSARTAN
     Indication: PRODUCT USED FOR UNKNOWN INDICATION
     Dosage: 100 MG, UNK (SACUBITRIL 49 MG/ VALSARTAN 51 MG)
     Route: 065

REACTIONS (5)
  - Hypoacusis [Unknown]
  - Weight decreased [Unknown]
  - Peripheral swelling [Unknown]
  - Cardiac valve disease [Unknown]
  - Heart rate increased [Unknown]
